FAERS Safety Report 23615781 (Version 1)
Quarter: 2024Q1

REPORT INFORMATION
  Report Type: Report from Study
  Country: CA (occurrence: CA)
  Receive Date: 20240311
  Receipt Date: 20240311
  Transmission Date: 20240409
  Serious: Yes (Hospitalization)
  Sender: FDA-Public Use
  Company Number: CA-TAKEDA-2024TUS021723

PATIENT
  Sex: Female

DRUGS (8)
  1. VEDOLIZUMAB [Suspect]
     Active Substance: VEDOLIZUMAB
     Indication: Colitis ulcerative
     Dosage: 300 MILLIGRAM
     Route: 042
     Dates: start: 20230615
  2. METFORMIN [Concomitant]
     Active Substance: METFORMIN HYDROCHLORIDE
     Dosage: UNK
  3. RAMIPRIL [Concomitant]
     Active Substance: RAMIPRIL
     Dosage: UNK
  4. WELLBUTRIN [Concomitant]
     Active Substance: BUPROPION HYDROCHLORIDE
     Dosage: UNK
  5. GLICLAZIDE [Concomitant]
     Active Substance: GLICLAZIDE
     Dosage: UNK
  6. MESALAMINE [Concomitant]
     Active Substance: MESALAMINE
     Dosage: UNK UNK, QD
  7. PENTASA [Concomitant]
     Active Substance: MESALAMINE
     Dosage: UNK
  8. ENTOCORT [Concomitant]
     Active Substance: BUDESONIDE
     Dosage: UNK

REACTIONS (2)
  - Abscess limb [Recovered/Resolved]
  - Ingrown hair [Recovered/Resolved]
